FAERS Safety Report 13472114 (Version 1)
Quarter: 2017Q2

REPORT INFORMATION
  Report Type: Spontaneous
  Country: US (occurrence: US)
  Receive Date: 20170422
  Receipt Date: 20170422
  Transmission Date: 20170830
  Serious: Yes (Death)
  Sender: FDA-Public Use
  Company Number: None

PATIENT
  Age: 78 Year
  Sex: Female
  Weight: 53 kg

DRUGS (11)
  1. BLEOMYCIN [Suspect]
     Active Substance: BLEOMYCIN SULFATE
     Indication: HODGKIN^S DISEASE
     Route: 042
     Dates: start: 20160811, end: 20161006
  2. FOSAPREPITANT [Concomitant]
     Active Substance: FOSAPREPITANT
  3. AZITHROMYCIN ANHYDROUS. [Concomitant]
     Active Substance: AZITHROMYCIN ANHYDROUS
  4. DOXORUBICIN [Concomitant]
     Active Substance: DOXORUBICIN
  5. VANCOMYCIN [Concomitant]
     Active Substance: VANCOMYCIN
  6. ZOSYN [Concomitant]
     Active Substance: PIPERACILLIN SODIUM\TAZOBACTAM SODIUM
  7. DACARBAZINE. [Concomitant]
     Active Substance: DACARBAZINE
  8. SOLU-MEDROL [Concomitant]
     Active Substance: METHYLPREDNISOLONE SODIUM SUCCINATE
  9. VINBLASTINE [Concomitant]
     Active Substance: VINBLASTINE
  10. BROAD-SPECTRUM ANTIBIOTICS [Concomitant]
  11. NEUPOGEN [Concomitant]
     Active Substance: FILGRASTIM

REACTIONS (2)
  - Pulmonary toxicity [None]
  - Dyspnoea [None]

NARRATIVE: CASE EVENT DATE: 20161027
